FAERS Safety Report 18024791 (Version 1)
Quarter: 2020Q3

REPORT INFORMATION
  Report Type: Spontaneous
  Country: US (occurrence: US)
  Receive Date: 20200714
  Receipt Date: 20200714
  Transmission Date: 20201103
  Serious: No
  Sender: FDA-Public Use
  Company Number: None

PATIENT
  Age: 80 Year
  Sex: Male
  Weight: 142 kg

DRUGS (1)
  1. GABAPENTIN (GABAPENTIN 400MG CAP) [Suspect]
     Active Substance: GABAPENTIN
     Route: 048
     Dates: start: 20190322, end: 20190920

REACTIONS (1)
  - Therapeutic response decreased [None]

NARRATIVE: CASE EVENT DATE: 20200316
